FAERS Safety Report 14213938 (Version 1)
Quarter: 2017Q4

REPORT INFORMATION
  Report Type: Spontaneous
  Country: FR (occurrence: FR)
  Receive Date: 20171122
  Receipt Date: 20171122
  Transmission Date: 20180321
  Serious: Yes (Other)
  Sender: FDA-Public Use
  Company Number: FR-MERCK KGAA-2034864

PATIENT
  Age: 72 Year
  Sex: Female

DRUGS (10)
  1. NOVOTHYROX [Suspect]
     Active Substance: LEVOTHYROXINE SODIUM
     Indication: HYPOTHYROIDISM
     Route: 048
     Dates: start: 20170608
  2. INNOVAIR(BEKFORM) [Concomitant]
     Route: 048
  3. VENTOLINE [Concomitant]
     Active Substance: ALBUTEROL
     Route: 048
  4. FIVASA [Concomitant]
     Active Substance: MESALAMINE
     Route: 048
  5. CORGARD [Concomitant]
     Active Substance: NADOLOL
     Route: 048
  6. OPTRUMA [Concomitant]
     Active Substance: RALOXIFENE HYDROCHLORIDE
     Route: 048
  7. LEVOTHYROXINE SODIUM. [Suspect]
     Active Substance: LEVOTHYROXINE SODIUM
     Route: 048
     Dates: start: 20170825
  8. AERIUS [Concomitant]
     Active Substance: DESLORATADINE
     Route: 048
  9. CACIT VITAMIN D3(LEKOVIT CA) [Concomitant]
     Route: 048
  10. ALLERGODIL [Concomitant]
     Active Substance: AZELASTINE
     Route: 048

REACTIONS (2)
  - Vertigo [Not Recovered/Not Resolved]
  - Blood thyroid stimulating hormone normal [Recovered/Resolved]

NARRATIVE: CASE EVENT DATE: 20170824
